FAERS Safety Report 23040270 (Version 2)
Quarter: 2024Q1

REPORT INFORMATION
  Report Type: Spontaneous
  Country: US (occurrence: US)
  Receive Date: 20231006
  Receipt Date: 20240207
  Transmission Date: 20240409
  Serious: Yes (Death, Hospitalization)
  Sender: FDA-Public Use
  Company Number: US-BoehringerIngelheim-2023-BI-265420

PATIENT
  Age: 79 Year
  Sex: Male

DRUGS (1)
  1. OLODATEROL HYDROCHLORIDE\TIOTROPIUM BROMIDE MONOHYDRATE [Suspect]
     Active Substance: OLODATEROL HYDROCHLORIDE\TIOTROPIUM BROMIDE MONOHYDRATE
     Indication: Product used for unknown indication
     Dates: end: 20240206

REACTIONS (2)
  - Death [Fatal]
  - Acute respiratory failure [Unknown]

NARRATIVE: CASE EVENT DATE: 20240206
